FAERS Safety Report 9493612 (Version 1)
Quarter: 2013Q3

REPORT INFORMATION
  Report Type: Spontaneous
  Country: NL (occurrence: NL)
  Receive Date: 20130902
  Receipt Date: 20130902
  Transmission Date: 20140515
  Serious: Yes (Hospitalization)
  Sender: FDA-Public Use
  Company Number: NL-PFIZER INC-2013252151

PATIENT
  Age: 61 Year
  Sex: Male
  Weight: 77 kg

DRUGS (2)
  1. CISPLATIN [Suspect]
     Indication: TRANSITIONAL CELL CARCINOMA
     Dosage: 135 MG, EVERY 3 WEEKS
     Route: 042
     Dates: start: 20130703
  2. GEMCITABINE HYDROCHLORIDE [Concomitant]
     Dosage: 1 DF, EVERY 3 WEEKS (2000 MG DAY 1.8 PER 3 WEEKS)
     Route: 042
     Dates: start: 20130703

REACTIONS (1)
  - Brain stem infarction [Recovering/Resolving]
